FAERS Safety Report 8441078-8 (Version None)
Quarter: 2012Q2

REPORT INFORMATION
  Report Type: 
  Country: None (occurrence: None)
  Receive Date: 20120323
  Receipt Date: 20111110
  Transmission Date: 20120825
  Serious: Yes (Life-Threatening, Disabling)
  Sender: FDA-Public Use
  Company Number: 163-21880-11071869

PATIENT
  Age: 63 Year
  Sex: Male

DRUGS (4)
  1. REVLIMID [Suspect]
     Indication: MULTIPLE MYELOMA
     Dosage: 25 MG, 1 IN 1 D, PO; 10 MG, 1 IN 1 D, PO; 15 MG, 1 IN 1 D, PO
     Route: 048
     Dates: start: 20081101
  2. REVLIMID [Suspect]
     Indication: MULTIPLE MYELOMA
     Dosage: 25 MG, 1 IN 1 D, PO; 10 MG, 1 IN 1 D, PO; 15 MG, 1 IN 1 D, PO
     Route: 048
     Dates: start: 20101006
  3. REVLIMID [Suspect]
     Indication: MULTIPLE MYELOMA
     Dosage: 25 MG, 1 IN 1 D, PO; 10 MG, 1 IN 1 D, PO; 15 MG, 1 IN 1 D, PO
     Route: 048
     Dates: start: 20110101, end: 20110406
  4. DEXAMETHASONE [Concomitant]

REACTIONS (3)
  - FATIGUE [None]
  - THROMBOCYTOPENIA [None]
  - MULTIPLE MYELOMA [None]
